FAERS Safety Report 18608270 (Version 2)
Quarter: 2020Q4

REPORT INFORMATION
  Report Type: Spontaneous
  Country: ES (occurrence: ES)
  Receive Date: 20201212
  Receipt Date: 20201219
  Transmission Date: 20210114
  Serious: Yes (Life-Threatening, Hospitalization)
  Sender: FDA-Public Use
  Company Number: NVSC2020ES329652

PATIENT
  Age: 59 Year
  Sex: Female

DRUGS (4)
  1. BROMAZEPAM [Interacting]
     Active Substance: BROMAZEPAM
     Indication: SUICIDE ATTEMPT
     Dosage: 31.5 MG, TOTAL (1 COMPRIMIDO A LA CENA, 30 CAPSULAS)
     Route: 048
     Dates: start: 20201120, end: 20201120
  2. LORAZEPAM. [Suspect]
     Active Substance: LORAZEPAM
     Indication: SUICIDE ATTEMPT
     Dosage: 6 MG, TOTAL (25 COMPRIMIDOS)
     Route: 048
     Dates: start: 20201120, end: 20201120
  3. PERMIXON [Interacting]
     Active Substance: HERBALS\SAW PALMETTO
     Indication: SUICIDE ATTEMPT
     Dosage: 1760 MG, TOTAL (11 COMPRIMIDOS DE PERMIXON)
     Route: 048
     Dates: start: 20201120, end: 20201120
  4. VENLAFAXINE [Interacting]
     Active Substance: VENLAFAXINE HYDROCHLORIDE
     Indication: SUICIDE ATTEMPT
     Dosage: 1350 MG, TOTAL (60 COMPRIMIDOS, 1 COMPRIMIDO AL DESAYUNO, 1 COMPRIMIDO A LA CENA)
     Route: 048
     Dates: start: 20201120, end: 20201120

REACTIONS (3)
  - Coma [Recovered/Resolved]
  - Tonic convulsion [Recovered/Resolved]
  - Muscle rigidity [Recovered/Resolved]

NARRATIVE: CASE EVENT DATE: 20201120
